FAERS Safety Report 16376843 (Version 1)
Quarter: 2019Q2

REPORT INFORMATION
  Report Type: Spontaneous
  Country: FR (occurrence: FR)
  Receive Date: 20190531
  Receipt Date: 20190531
  Transmission Date: 20190711
  Serious: Yes (Congenital Anomaly, Other)
  Sender: FDA-Public Use
  Company Number: FR-MYLANLABS-2019M1049581

PATIENT
  Age: 4 Month

DRUGS (3)
  1. LAMOTRIGINE. [Suspect]
     Active Substance: LAMOTRIGINE
     Indication: PRODUCT USED FOR UNKNOWN INDICATION
     Dosage: 25 MILLIGRAM
     Route: 064
     Dates: start: 20110711, end: 20120406
  2. DEPAKINE                           /00228502/ [Suspect]
     Active Substance: VALPROATE SODIUM
     Indication: PRODUCT USED FOR UNKNOWN INDICATION
     Dosage: 500 MILLIGRAM, QD
     Route: 064
     Dates: start: 20110711, end: 201202
  3. KEPPRA [Suspect]
     Active Substance: LEVETIRACETAM
     Indication: PRODUCT USED FOR UNKNOWN INDICATION
     Dosage: 250 MILLIGRAM, QD
     Route: 064
     Dates: start: 20110711, end: 20120406

REACTIONS (3)
  - Multiple congenital abnormalities [Not Recovered/Not Resolved]
  - Congenital renal cyst [Recovered/Resolved with Sequelae]
  - Foetal exposure timing unspecified [Recovered/Resolved]

NARRATIVE: CASE EVENT DATE: 20120406
